FAERS Safety Report 8471991-7 (Version None)
Quarter: 2012Q2

REPORT INFORMATION
  Report Type: 
  Country: None (occurrence: None)
  Receive Date: 20120323
  Receipt Date: 20111101
  Transmission Date: 20120825
  Serious: Yes (Hospitalization)
  Sender: FDA-Public Use
  Company Number: 163-21880-11100621

PATIENT
  Age: 66 Year
  Sex: Male

DRUGS (5)
  1. LYRICA [Concomitant]
  2. REVLIMID [Suspect]
     Indication: MULTIPLE MYELOMA
     Dosage: 25 MG, DAILY  X 21 DAYS, PO
     Route: 048
     Dates: start: 20110801
  3. DEXAMETHASONE [Concomitant]
  4. COUMADIN [Concomitant]
  5. OXYCONTIN [Concomitant]

REACTIONS (4)
  - CHILLS [None]
  - MUSCLE SPASMS [None]
  - PYREXIA [None]
  - PNEUMONIA [None]
